FAERS Safety Report 5650498-6 (Version None)
Quarter: 2008Q1

REPORT INFORMATION
  Report Type: 
  Country: None (occurrence: None)
  Receive Date: 20080131
  Receipt Date: 20071220
  Transmission Date: 20080703
  Serious: No
  Sender: FDA-Public Use
  Company Number: US200712004280

PATIENT
  Age: 64 Year
  Sex: Male
  Weight: 101.1 kg

DRUGS (15)
  1. BYETTA [Suspect]
     Indication: TYPE 2 DIABETES MELLITUS
     Dosage: 5 UG, 2/D, SUBCUTANEOUS ; 10 UG, 2/D, SUBCUTANEOUS
     Route: 058
     Dates: start: 20070601, end: 20070701
  2. BYETTA [Suspect]
     Indication: TYPE 2 DIABETES MELLITUS
     Dosage: 5 UG, 2/D, SUBCUTANEOUS ; 10 UG, 2/D, SUBCUTANEOUS
     Route: 058
     Dates: start: 20070701, end: 20071001
  3. ANTI-DIABETICS TABLET [Concomitant]
  4. ALLOPURINOL [Concomitant]
  5. ZOCOR [Concomitant]
  6. TRICOR [Concomitant]
  7. CHOLESTEROL- AND TRIGLYCERIDES REDUCERS [Concomitant]
  8. POTASSIUM (POTASSIUM) [Concomitant]
  9. LISINOPRIL [Concomitant]
  10. VERAPAMIL /000014302/ (VERAPAMIL HYDROCHLORIDE) TABLET [Concomitant]
  11. LOZOL [Concomitant]
  12. ASPIRIN [Concomitant]
  13. VITAMIN B-COMPLEX WITH VITAMIN C [Concomitant]
  14. SOMA [Concomitant]
  15. PRAMLINTIDE ACETATE (PRAMLINTIDE ACETATE) TABLET [Concomitant]

REACTIONS (5)
  - ARTHRITIS [None]
  - DYSPEPSIA [None]
  - NAUSEA [None]
  - RENAL FAILURE [None]
  - WEIGHT DECREASED [None]
